FAERS Safety Report 6289663-6 (Version None)
Quarter: 2009Q3

REPORT INFORMATION
  Report Type: 
  Country: None (occurrence: None)
  Receive Date: 20090730
  Receipt Date: 20080603
  Transmission Date: 20100115
  Serious: No
  Sender: FDA-Public Use
  Company Number: US-BRISTOL-MYERS SQUIBB COMPANY-14214258

PATIENT
  Sex: Male

DRUGS (7)
  1. COUMADIN [Suspect]
     Indication: THROMBOSIS
  2. COUMADIN [Suspect]
     Indication: RENAL FAILURE
  3. OXYCONTIN [Concomitant]
  4. ZESTRIL [Concomitant]
  5. LASIX [Concomitant]
  6. TOPROL-XL [Concomitant]
  7. FOLIC ACID [Concomitant]

REACTIONS (1)
  - INTERNATIONAL NORMALISED RATIO INCREASED [None]
